FAERS Safety Report 8489813-7 (Version None)
Quarter: 2012Q3

REPORT INFORMATION
  Report Type: 
  Country: None (occurrence: None)
  Receive Date: 20120705
  Receipt Date: 20120601
  Transmission Date: 20120928
  Serious: No
  Sender: FDA-Public Use
  Company Number: US-BAUSCH-2012BL003736

PATIENT
  Age: 77 Year
  Sex: Male

DRUGS (6)
  1. SIMVASTATIN [Concomitant]
  2. TIMOLOL MALEATE [Concomitant]
  3. OMEPRAZOLE [Concomitant]
  4. LATANOPROST [Suspect]
     Indication: GLAUCOMA
     Route: 047
     Dates: start: 20120404, end: 20120605
  5. DIPRIDAMOLE [Concomitant]
  6. SYNTHROID [Concomitant]

REACTIONS (3)
  - HEADACHE [None]
  - EYE IRRITATION [None]
  - EYE PAIN [None]
